FAERS Safety Report 5331678-6 (Version None)
Quarter: 2007Q2

REPORT INFORMATION
  Report Type: 
  Country: None (occurrence: None)
  Receive Date: 20070522
  Receipt Date: 20060501
  Transmission Date: 20071010
  Serious: Yes (Other)
  Sender: FDA-Public Use
  Company Number: US-MERCK-0605USA00421

PATIENT

DRUGS (1)
  1. COZAAR [Suspect]
     Route: 065

REACTIONS (1)
  - STEVENS-JOHNSON SYNDROME [None]
